FAERS Safety Report 19429380 (Version 1)
Quarter: 2021Q2

REPORT INFORMATION
  Report Type: Spontaneous
  Country: FR (occurrence: FR)
  Receive Date: 20210617
  Receipt Date: 20210617
  Transmission Date: 20210717
  Serious: Yes (Death)
  Sender: FDA-Public Use
  Company Number: FR-TEVA-2021-FR-1921830

PATIENT
  Age: 48 Year
  Sex: Female
  Weight: 56 kg

DRUGS (6)
  1. SOLUPRED I.V., LYOPHILISAT ET SOLUTION POUR PREPARATION INJECTABLE [Concomitant]
  2. PACLITAXEL. [Suspect]
     Active Substance: PACLITAXEL
     Indication: OVARIAN CANCER
     Dosage: 1DOSAGEFORM
     Route: 042
     Dates: start: 20210520, end: 20210520
  3. ZOPHREN [Concomitant]
     Active Substance: ONDANSETRON
  4. AVASTIN [Suspect]
     Active Substance: BEVACIZUMAB
     Indication: OVARIAN CANCER
     Dosage: 1DOSAGEFORM
     Route: 042
     Dates: start: 20210520, end: 20210520
  5. CARBOPLATINE [Suspect]
     Active Substance: CARBOPLATIN
     Indication: OVARIAN CANCER
     Dosage: 1DOSAGEFORM
     Route: 042
     Dates: start: 20210520, end: 20210520
  6. POLARAMINE [Concomitant]
     Active Substance: DEXCHLORPHENIRAMINE MALEATE

REACTIONS (1)
  - Haemolytic uraemic syndrome [Fatal]

NARRATIVE: CASE EVENT DATE: 20210520
